FAERS Safety Report 6145506-2 (Version None)
Quarter: 2009Q2

REPORT INFORMATION
  Report Type: 
  Country: None (occurrence: None)
  Receive Date: 20090402
  Receipt Date: 20090317
  Transmission Date: 20091009
  Serious: Yes (Other)
  Sender: FDA-Public Use
  Company Number: 2009S1004675

PATIENT
  Age: 64 Year
  Sex: Female

DRUGS (2)
  1. ETOPOSIDE [Suspect]
     Indication: SMALL CELL LUNG CANCER STAGE UNSPECIFIED
  2. CISPLATIN [Suspect]
     Indication: SMALL CELL LUNG CANCER STAGE UNSPECIFIED

REACTIONS (4)
  - BONE MARROW FAILURE [None]
  - CONDITION AGGRAVATED [None]
  - DERMATOMYOSITIS [None]
  - RENAL IMPAIRMENT [None]
